FAERS Safety Report 5152238-6 (Version None)
Quarter: 2006Q4

REPORT INFORMATION
  Report Type: 
  Country: None (occurrence: None)
  Receive Date: 20061114
  Receipt Date: 20061114
  Transmission Date: 20070319
  Serious: No
  Sender: FDA-Public Use
  Company Number: None

PATIENT
  Age: 79 Year
  Sex: Female
  Weight: 75 kg

DRUGS (1)
  1. TRASYLOL [Suspect]
     Indication: HAEMORRHAGE PROPHYLAXIS
     Dosage: 60,000 UNITS -FULL DOSE-  X 1   INTRACAVERN
     Route: 017
     Dates: start: 20060914, end: 20060914

REACTIONS (4)
  - HAEMODIALYSIS [None]
  - POST PROCEDURAL COMPLICATION [None]
  - RENAL FAILURE ACUTE [None]
  - TRACHEOSTOMY [None]
